FAERS Safety Report 14369339 (Version 1)
Quarter: 2018Q1

REPORT INFORMATION
  Report Type: Spontaneous
  Country: US (occurrence: US)
  Receive Date: 20180109
  Receipt Date: 20180109
  Transmission Date: 20180509
  Serious: No
  Sender: FDA-Public Use
  Company Number: US-DRREDDYS-USA/USA/17/0090743

PATIENT
  Age: 51 Year
  Sex: Female
  Weight: 52.16 kg

DRUGS (2)
  1. NICOTINE. [Suspect]
     Active Substance: NICOTINE
     Indication: SMOKING CESSATION THERAPY
     Route: 061
  2. NICOTINE. [Suspect]
     Active Substance: NICOTINE
     Route: 061

REACTIONS (3)
  - Treatment noncompliance [Unknown]
  - Tremor [Recovered/Resolved]
  - Agitation [Recovered/Resolved]
